FAERS Safety Report 5775572-5 (Version None)
Quarter: 2008Q2

REPORT INFORMATION
  Report Type: 
  Country: None (occurrence: None)
  Receive Date: 20080617
  Receipt Date: 20080610
  Transmission Date: 20081010
  Serious: Yes (Hospitalization)
  Sender: FDA-Public Use
  Company Number: FR-GENENTECH-262568

PATIENT
  Sex: Male

DRUGS (1)
  1. ACTIVASE [Suspect]
     Indication: CEREBRAL INFARCTION
     Dosage: 76 MG, UNK
     Route: 042
     Dates: start: 20080506

REACTIONS (2)
  - CHOKING SENSATION [None]
  - PHARYNGEAL ERYTHEMA [None]
